FAERS Safety Report 8115373-6 (Version None)
Quarter: 2012Q1

REPORT INFORMATION
  Report Type: 
  Country: None (occurrence: None)
  Receive Date: 20120206
  Receipt Date: 20120206
  Transmission Date: 20120608
  Serious: Yes (Other)
  Sender: FDA-Public Use
  Company Number: None

PATIENT
  Age: 7 Year
  Sex: Male
  Weight: 22.679 kg

DRUGS (2)
  1. ALBUTEROL [Suspect]
     Indication: BRONCHITIS
     Dosage: 3 ML
     Route: 055
     Dates: start: 20120201, end: 20120201
  2. PROAIR HFA [Concomitant]
     Indication: BRONCHITIS
     Dosage: 1 PUFF
     Route: 055
     Dates: start: 20120201, end: 20120202

REACTIONS (3)
  - URTICARIA [None]
  - INCORRECT DOSE ADMINISTERED [None]
  - DEVICE DIFFICULT TO USE [None]
